FAERS Safety Report 7255408-6 (Version None)
Quarter: 2011Q1

REPORT INFORMATION
  Report Type: 
  Country: None (occurrence: None)
  Receive Date: 20110129
  Receipt Date: 20100228
  Transmission Date: 20110831
  Serious: No
  Sender: FDA-Public Use
  Company Number: US-ABBOTT-10P-163-0630039-00

PATIENT
  Sex: Female
  Weight: 72.64 kg

DRUGS (5)
  1. LOVASTATIN [Concomitant]
     Indication: BLOOD CHOLESTEROL INCREASED
     Route: 048
  2. LEVOTHYROXINE SODIUM [Concomitant]
     Indication: PRODUCT USED FOR UNKNOWN INDICATION
  3. LEXAPRO [Concomitant]
     Indication: DEPRESSION
  4. HUMIRA [Suspect]
     Indication: RHEUMATOID ARTHRITIS
     Route: 058
     Dates: start: 20100201
  5. WELLBUTRIN [Concomitant]
     Indication: ANTIDEPRESSANT THERAPY

REACTIONS (3)
  - INJECTION SITE PALLOR [None]
  - FATIGUE [None]
  - INJECTION SITE ERYTHEMA [None]
